FAERS Safety Report 9556905 (Version 1)
Quarter: 2013Q3

REPORT INFORMATION
  Report Type: Spontaneous
  Country: US (occurrence: US)
  Receive Date: 20130926
  Receipt Date: 20130926
  Transmission Date: 20140515
  Serious: Yes (Death)
  Sender: FDA-Public Use
  Company Number: US-PFIZER INC-2013275078

PATIENT
  Age: 61 Year
  Sex: Male

DRUGS (7)
  1. INLYTA [Suspect]
     Indication: RENAL CANCER
     Dosage: 5 MG, UNK
     Dates: start: 20130701
  2. AFINITOR [Concomitant]
     Dosage: UNK
  3. ASPIRIN EC [Concomitant]
     Dosage: UNK
  4. AZITHROMYCIN [Concomitant]
     Dosage: UNK
  5. CLOTRIMAZOLE [Concomitant]
     Dosage: UNK
  6. DILTIAZEM HYDROCHLORIDE CR [Concomitant]
     Dosage: UNK
  7. HYDROCODONE-ACETAMINOPHEN [Concomitant]
     Dosage: UNK

REACTIONS (1)
  - Death [Fatal]
